FAERS Safety Report 4840352-1 (Version None)
Quarter: 2005Q4

REPORT INFORMATION
  Report Type: 
  Country: None (occurrence: None)
  Receive Date: 20051025
  Receipt Date: 20041013
  Transmission Date: 20060501
  Serious: No
  Sender: FDA-Public Use
  Company Number: 2004-03376

PATIENT
  Age: 38 Year
  Sex: Male

DRUGS (2)
  1. TUBERSOL [Suspect]
     Dosage: I.M.
     Dates: start: 20040804
  2. DIPHTHERIA AND TETANUS TOXOIDS [Concomitant]

REACTIONS (4)
  - BRACHIAL PLEXUS INJURY [None]
  - HYPOAESTHESIA [None]
  - PAIN IN EXTREMITY [None]
  - WRONG DRUG ADMINISTERED [None]
